FAERS Safety Report 20106099 (Version 1)
Quarter: 2021Q4

REPORT INFORMATION
  Report Type: Spontaneous
  Country: US (occurrence: None)
  Receive Date: 20211124
  Receipt Date: 20211124
  Transmission Date: 20220303
  Serious: Yes (Other)
  Sender: FDA-Public Use
  Company Number: US-ROCHE-2958663

PATIENT
  Sex: Male

DRUGS (18)
  1. OCREVUS [Suspect]
     Active Substance: OCRELIZUMAB
     Indication: Relapsing multiple sclerosis
     Dosage: UNKNOWN
     Route: 042
     Dates: start: 20170425
  2. ATORVASTATIN CALCIUM [Concomitant]
     Active Substance: ATORVASTATIN CALCIUM
     Dosage: 200 MG ONCE A DAY ;ONGOING: UNKNOWN
     Route: 048
  3. CEPHALEXIN [Concomitant]
     Active Substance: CEPHALEXIN
     Dosage: 250MG ONCE A DAY ;ONGOING: UNKNOWN
     Route: 048
  4. MOUTH WASH [Concomitant]
     Dosage: UNKNOWN
     Route: 065
  5. DULOXETINE [Concomitant]
     Active Substance: DULOXETINE
     Dosage: 30 MG ONCE A DAY ;ONGOING: UNKNOWN
     Route: 048
  6. DOCUSATE SODIUM [Concomitant]
     Active Substance: DOCUSATE SODIUM
     Route: 065
  7. SENNOSIDES [Concomitant]
     Active Substance: SENNOSIDES
     Dosage: 8.6 MG TAKES 2 TABS IN THE MORNING AND 2 TABS AT NIGHT ;ONGOING: UNKNOWN
     Route: 065
  8. GABAPENTIN [Concomitant]
     Active Substance: GABAPENTIN
     Dosage: 300MG, TAKES THAT TWICE A DAY FOR A TOTAL OF 600MG ;ONGOING: UNKNOWN
     Route: 065
  9. LEVETIRACETAM [Concomitant]
     Active Substance: LEVETIRACETAM
     Dosage: 500MG TABLETS TWICE DAILY, HE GETS 1000MG OF THAT. THE HAS VARIED HE USE TO TAKE 3000MG ;ONGOING: UN
     Route: 065
  10. LISINOPRIL [Concomitant]
     Active Substance: LISINOPRIL
     Dosage: 5MG ONCE A DAY ;ONGOING: UNKNOWN
     Route: 065
  11. METOPROLOL SUCCINATE [Concomitant]
     Active Substance: METOPROLOL SUCCINATE
     Dosage: 12.5MG ONCE A DAY, HE MIGHT BE COMING OFF THAT. ;ONGOING: UNKNOWN
     Route: 065
  12. WARFARIN [Concomitant]
     Active Substance: WARFARIN
     Dosage: 4 TO 6 MG NIGHTLY IT DEPENDS ON HIS BLOOD TEST, EVERY OTHER DAY, IT IS 4MG ONE DAY AND THEN 6 MG ;ON
     Route: 065
  13. VITAMIN D3 [Concomitant]
     Active Substance: CHOLECALCIFEROL
     Dosage: 1000 UNITS ;ONGOING: UNKNOWN
     Route: 065
  14. PROBIOTICS NOS [Concomitant]
     Active Substance: PROBIOTICS NOS
     Dosage: 2 BILLION CULTURED AND STRAINS ;ONGOING: UNKNOWN
     Route: 065
  15. ZINC [Concomitant]
     Active Substance: ZINC
     Route: 065
  16. HERBALS [Concomitant]
     Active Substance: HERBALS
     Route: 065
  17. CRANBERRY [Concomitant]
     Active Substance: CRANBERRY
     Indication: Urinary tract infection
     Route: 065
  18. METHENAMINE [Concomitant]
     Active Substance: METHENAMINE
     Dosage: 1GRAM, 0.5 GRAMS TWICE A DAY ;ONGOING: UNKNOWN
     Route: 065
     Dates: start: 20211007

REACTIONS (3)
  - Urinary tract infection [Unknown]
  - Rash [Unknown]
  - Therapeutic response decreased [Unknown]
